FAERS Safety Report 5344295-9 (Version None)
Quarter: 2007Q2

REPORT INFORMATION
  Report Type: 
  Country: None (occurrence: None)
  Receive Date: 20070604
  Receipt Date: 20070524
  Transmission Date: 20071010
  Serious: Yes (Hospitalization)
  Sender: FDA-Public Use
  Company Number: US-ELI_LILLY_AND_COMPANY-US200705006604

PATIENT
  Age: 48 Year
  Sex: Male

DRUGS (4)
  1. CYMBALTA [Suspect]
     Indication: DEPRESSION
     Dosage: 30 MG, UNK
     Dates: start: 20070301
  2. CYMBALTA [Suspect]
     Dosage: 60 MG, DAILY (1/D)
     Route: 048
  3. CYMBALTA [Suspect]
     Dosage: 60 MG, 2/D
     Dates: start: 20070413
  4. CYMBALTA [Suspect]
     Dosage: UNK MG, UNK
     Route: 048
     Dates: end: 20070415

REACTIONS (10)
  - ABDOMINAL DISTENSION [None]
  - AGITATION [None]
  - ARTHRALGIA [None]
  - COLD SWEAT [None]
  - FLATULENCE [None]
  - HOMICIDAL IDEATION [None]
  - INSOMNIA [None]
  - NAUSEA [None]
  - POLLAKIURIA [None]
  - SUICIDAL IDEATION [None]
